FAERS Safety Report 14623704 (Version 4)
Quarter: 2019Q2

REPORT INFORMATION
  Report Type: Report from Study
  Country: HU (occurrence: HU)
  Receive Date: 20180312
  Receipt Date: 20190620
  Transmission Date: 20190711
  Serious: Yes (Hospitalization)
  Sender: FDA-Public Use
  Company Number: HU-ROCHE-2085022

PATIENT
  Age: 76 Year
  Sex: Female

DRUGS (14)
  1. COBIMETINIB. [Suspect]
     Active Substance: COBIMETINIB
     Indication: MALIGNANT MELANOMA
     Dosage: ON 02/MAR/2018, RECEIVED MOST RECENT DOSE OF COBIMETINIB 60MG
     Route: 048
     Dates: start: 20180220
  2. TIAPRIDA [Concomitant]
     Active Substance: TIAPRIDE
     Indication: NERVOUSNESS
     Route: 065
     Dates: start: 20180309, end: 20180312
  3. PANTOPRAZOLE [Concomitant]
     Active Substance: PANTOPRAZOLE
     Indication: DYSPEPSIA
     Route: 065
     Dates: start: 20180309, end: 20180312
  4. CERUCAL [Concomitant]
     Active Substance: METOCLOPRAMIDE HYDROCHLORIDE
     Indication: NAUSEA
     Route: 065
     Dates: start: 20180309, end: 20180312
  5. VEMURAFENIB. [Suspect]
     Active Substance: VEMURAFENIB
     Indication: MALIGNANT MELANOMA
     Dosage: ON 02/MAR/2018, RECEIVED MOST RECENT DOSE OF VEMURAFENIB (4TABLETS).
     Route: 048
     Dates: start: 20180220
  6. CEFUROXIM [CEFUROXIME] [Concomitant]
     Route: 065
     Dates: start: 20180309, end: 20180312
  7. RINGER LACTATE B. BRAUN [Concomitant]
     Indication: HYPOVOLAEMIA
     Route: 065
     Dates: start: 20180309, end: 20180312
  8. NACL [Concomitant]
     Active Substance: SODIUM CHLORIDE
     Indication: HYPONATRAEMIA
     Route: 065
     Dates: start: 20180309, end: 20180312
  9. ENOXAPARIN [Concomitant]
     Active Substance: ENOXAPARIN
     Route: 065
     Dates: start: 20180311, end: 20180311
  10. PROTEXIN BALANCE [Concomitant]
     Route: 065
     Dates: start: 20180309, end: 20180312
  11. CONCOR [Concomitant]
     Active Substance: BISOPROLOL FUMARATE
     Indication: HYPERTENSION
     Route: 065
     Dates: start: 20180309, end: 20180312
  12. METOCLOPRAMIDE. [Concomitant]
     Active Substance: METOCLOPRAMIDE
  13. SOLU-MEDROL [Concomitant]
     Active Substance: METHYLPREDNISOLONE SODIUM SUCCINATE
     Route: 065
     Dates: start: 20180309, end: 20180312
  14. POTASSIUM CHLORIDE. [Concomitant]
     Active Substance: POTASSIUM CHLORIDE
     Indication: HYPOKALAEMIA
     Route: 065
     Dates: start: 20180309, end: 20180312

REACTIONS (1)
  - General physical health deterioration [Not Recovered/Not Resolved]

NARRATIVE: CASE EVENT DATE: 20180302
